FAERS Safety Report 8790103 (Version 3)
Quarter: 2012Q4

REPORT INFORMATION
  Report Type: 
  Country: US (occurrence: US)
  Receive Date: 20120917
  Receipt Date: 20121019
  Transmission Date: 20130627
  Serious: Yes (Death, Hospitalization, Other)
  Sender: FDA-Public Use
  Company Number: US-CELGENEUS-163-21880-12091183

PATIENT
  Age: 71 None
  Sex: Male

DRUGS (4)
  1. REVLIMID [Suspect]
     Indication: LYMPHOMA
     Dosage: 15 Milligram
     Route: 048
     Dates: start: 201203, end: 2012
  2. REVLIMID [Suspect]
     Dosage: 10 Milligram
     Route: 048
     Dates: start: 201204, end: 2012
  3. ZANTAC [Concomitant]
     Indication: DRUG USE FOR UNKNOWN INDICATION
     Route: 065
  4. DECADRON [Concomitant]
     Indication: LYMPHOMA
     Route: 065
     Dates: start: 201205, end: 201207

REACTIONS (3)
  - Diffuse large B-cell lymphoma [Fatal]
  - Pneumonia [Unknown]
  - Drug ineffective [Unknown]
